FAERS Safety Report 22913441 (Version 3)
Quarter: 2023Q4

REPORT INFORMATION
  Report Type: Report from Study
  Country: CH (occurrence: CH)
  Receive Date: 20230906
  Receipt Date: 20231121
  Transmission Date: 20240110
  Serious: Yes (Death, Hospitalization, Other)
  Sender: FDA-Public Use
  Company Number: CH-BRISTOL-MYERS SQUIBB COMPANY-2023-111031

PATIENT
  Age: 64 Year
  Sex: Male
  Weight: 99 kg

DRUGS (18)
  1. BETAMETHASONE DIPROPIONATE [Concomitant]
     Active Substance: BETAMETHASONE DIPROPIONATE
     Indication: Product used for unknown indication
     Dosage: DOSE= 1 UNIT NOS
     Route: 061
     Dates: start: 2000
  2. LUMIGAN [Concomitant]
     Active Substance: BIMATOPROST
     Indication: Product used for unknown indication
     Dosage: DOSE=1 UNIT NOS
     Route: 047
     Dates: start: 2000
  3. MEFENAMIC ACID [Concomitant]
     Active Substance: MEFENAMIC ACID
     Indication: Product used for unknown indication
     Route: 048
     Dates: start: 2000
  4. SIMBRINZA [Concomitant]
     Active Substance: BRIMONIDINE TARTRATE\BRINZOLAMIDE
     Indication: Product used for unknown indication
     Dosage: DOSE= 1 UNIT NOS
     Route: 047
     Dates: start: 2000
  5. CANSARTAN PLUS [Concomitant]
     Indication: Product used for unknown indication
     Route: 048
     Dates: start: 2002
  6. MAGNESIUM ASPARTATE HYDROCHLORIDE [Concomitant]
     Active Substance: MAGNESIUM ASPARTATE HYDROCHLORIDE
     Indication: Product used for unknown indication
     Route: 048
     Dates: start: 2012
  7. GLYCOPYRRONIUM\INDACATEROL [Concomitant]
     Active Substance: GLYCOPYRRONIUM\INDACATEROL
     Indication: Product used for unknown indication
     Route: 055
     Dates: start: 2012
  8. VENTOLIN [Concomitant]
     Active Substance: ALBUTEROL SULFATE
     Indication: Product used for unknown indication
     Dosage: DOSE= 1 UNIT NOS
     Route: 055
     Dates: start: 2012
  9. FLUTICASONE PROPIONATE\FORMOTEROL FUMARATE [Concomitant]
     Active Substance: FLUTICASONE PROPIONATE\FORMOTEROL FUMARATE
     Indication: Product used for unknown indication
     Route: 055
     Dates: start: 2019
  10. VITAMINS NOS [Concomitant]
     Active Substance: VITAMINS
     Indication: Prophylaxis
     Dosage: DOSE= 1 UNIT NOS
     Route: 048
     Dates: start: 2019
  11. CHOLECALCIFEROL [Concomitant]
     Active Substance: CHOLECALCIFEROL
     Indication: Product used for unknown indication
     Dosage: DOSE= 20 UNIT NOS
     Route: 048
     Dates: start: 2019
  12. XARELTO [Concomitant]
     Active Substance: RIVAROXABAN
     Indication: Product used for unknown indication
     Route: 048
     Dates: start: 2020
  13. BEPANTHEN PLUS [CHLORHEXIDINE GLUCONATE;DEXPANTHENOL] [Concomitant]
     Indication: Product used for unknown indication
     Dosage: DOSE= 2 UNIT NOS
     Route: 061
     Dates: start: 20220905
  14. LIFO-SCRUB [Concomitant]
     Indication: Product used for unknown indication
     Route: 061
     Dates: start: 20220905
  15. BISOPROLOL [Concomitant]
     Active Substance: BISOPROLOL\BISOPROLOL FUMARATE
     Indication: Product used for unknown indication
     Route: 048
     Dates: start: 20221228
  16. HYDROCORTISONE [Concomitant]
     Active Substance: HYDROCORTISONE
     Indication: Glucocorticoid deficiency
     Route: 048
     Dates: start: 20230101
  17. NASONEX [Concomitant]
     Active Substance: MOMETASONE FUROATE
     Indication: Product used for unknown indication
     Dosage: DOSE= 1 UNIT NOS
     Route: 045
     Dates: start: 20230714
  18. KETOTIFEN FUMARATE [Concomitant]
     Active Substance: KETOTIFEN FUMARATE
     Indication: Product used for unknown indication
     Dosage: DOSE= 2 UNIT NOS
     Route: 047
     Dates: start: 20230714

REACTIONS (3)
  - Vertigo [Recovering/Resolving]
  - Completed suicide [Fatal]
  - Uveitis [Recovering/Resolving]

NARRATIVE: CASE EVENT DATE: 20230804
